FAERS Safety Report 8380492-6 (Version None)
Quarter: 2012Q2

REPORT INFORMATION
  Report Type: 
  Country: None (occurrence: None)
  Receive Date: 20120523
  Receipt Date: 20120515
  Transmission Date: 20120825
  Serious: Yes (Death, Hospitalization)
  Sender: FDA-Public Use
  Company Number: FR-GLAXOSMITHKLINE-B0801494A

PATIENT
  Age: 84 Year
  Sex: Male

DRUGS (6)
  1. AVODART [Concomitant]
  2. HYPERIUM [Concomitant]
  3. TANAKAN [Concomitant]
  4. THIAMINE HYDROCHLORIDE [Concomitant]
  5. ARIXTRA [Suspect]
     Indication: PRODUCT USED FOR UNKNOWN INDICATION
     Dates: start: 20120106, end: 20120116
  6. KETOPROFEN [Concomitant]

REACTIONS (7)
  - LOSS OF CONSCIOUSNESS [None]
  - MYDRIASIS [None]
  - INTRAVENTRICULAR HAEMORRHAGE [None]
  - CEREBRAL HAEMORRHAGE [None]
  - BRAIN STEM HAEMORRHAGE [None]
  - MALAISE [None]
  - RESPIRATORY FAILURE [None]
